FAERS Safety Report 18077468 (Version 1)
Quarter: 2020Q3

REPORT INFORMATION
  Report Type: Spontaneous
  Country: GB (occurrence: GB)
  Receive Date: 20200728
  Receipt Date: 20200728
  Transmission Date: 20201103
  Serious: Yes (Life-Threatening, Hospitalization)
  Sender: FDA-Public Use
  Company Number: GB-ALKEM LABORATORIES LIMITED-GB-ALKEM-2020-00354

PATIENT
  Age: 72 Year

DRUGS (10)
  1. TAZOBACTAM [Suspect]
     Active Substance: TAZOBACTAM
     Indication: PRODUCT USED FOR UNKNOWN INDICATION
     Dosage: UNK, EVERY
     Route: 042
  2. CO?AMOXICLAV [Suspect]
     Active Substance: AMOXICILLIN\CLAVULANATE POTASSIUM
     Indication: SEPSIS
     Dosage: 1.2 GRAM, OD (EVERY 1 DAY)
     Route: 041
     Dates: start: 20110328, end: 20110403
  3. CEFTRIAXONE. [Suspect]
     Active Substance: CEFTRIAXONE
     Indication: PANCREATITIS
     Dosage: 1 GRAM, OD (EVERY 1 DAY)
     Route: 041
     Dates: start: 20110308, end: 20110308
  4. CEFUROXIME AXETIL. [Suspect]
     Active Substance: CEFUROXIME AXETIL
     Indication: PRODUCT USED FOR UNKNOWN INDICATION
     Dosage: 1.5 GRAM EVERY
     Route: 041
     Dates: start: 20110308, end: 20110308
  5. METRONIDAZOLE. [Suspect]
     Active Substance: METRONIDAZOLE
     Indication: PRODUCT USED FOR UNKNOWN INDICATION
     Dosage: 500 MILLIGRAM, OD (EVERY 1 DAY)
     Route: 041
     Dates: start: 20110308, end: 20110308
  6. ERYTHROMYCIN. [Suspect]
     Active Substance: ERYTHROMYCIN
     Indication: PRODUCT USED FOR UNKNOWN INDICATION
     Dosage: 125 MILLIGRAM, EVERY 1 DAY
     Route: 042
     Dates: start: 20110319, end: 20110321
  7. FLUCLOXACILLIN [Suspect]
     Active Substance: FLUCLOXACILLIN
     Indication: PRODUCT USED FOR UNKNOWN INDICATION
     Dosage: 500 MILLIGRAM, OD (EVERY 1 DAY)
     Route: 048
     Dates: start: 20100908
  8. MEROPENEM. [Suspect]
     Active Substance: MEROPENEM
     Indication: PANCREATITIS NECROTISING
     Dosage: 1 GRAM, EVERY 1 DAY
     Route: 041
     Dates: start: 20110309, end: 20110313
  9. PIPERACILLIN AND TAZOBACTAM [Suspect]
     Active Substance: PIPERACILLIN SODIUM\TAZOBACTAM SODIUM
     Indication: PNEUMONIA
     Dosage: 4.5 GRAM, OD (EVERY 1 DAY)
     Route: 041
     Dates: start: 20110420, end: 20110425
  10. TRIMETHOPRIM. [Suspect]
     Active Substance: TRIMETHOPRIM
     Indication: URINARY TRACT INFECTION
     Dosage: 200 MILLIGRAM, OD (EVERY 1 DAY)
     Route: 048
     Dates: start: 20110305, end: 20110305

REACTIONS (1)
  - Clostridium test positive [Recovered/Resolved]

NARRATIVE: CASE EVENT DATE: 20110421
